FAERS Safety Report 6310389-4 (Version None)
Quarter: 2009Q3

REPORT INFORMATION
  Report Type: 
  Country: None (occurrence: None)
  Receive Date: 20090814
  Receipt Date: 20090803
  Transmission Date: 20100115
  Serious: Yes (Other)
  Sender: FDA-Public Use
  Company Number: SE-JNJFOC-20090800837

PATIENT
  Age: 14 Year
  Sex: Male

DRUGS (5)
  1. REMICADE [Suspect]
     Route: 042
  2. REMICADE [Suspect]
     Indication: COLITIS ULCERATIVE
     Route: 042
  3. CETIRIZINE HCL [Concomitant]
  4. ACETAMINOPHEN [Concomitant]
  5. SOLU-CORTEF [Concomitant]
     Route: 050

REACTIONS (10)
  - AURICULAR SWELLING [None]
  - FLUSHING [None]
  - HEADACHE [None]
  - HEART RATE INCREASED [None]
  - INFUSION RELATED REACTION [None]
  - NASOPHARYNGITIS [None]
  - NAUSEA [None]
  - PANCREATITIS [None]
  - RASH [None]
  - VOMITING [None]
